FAERS Safety Report 8271292 (Version 3)
Quarter: 2013Q1

REPORT INFORMATION
  Report Type: Spontaneous
  Country: DE (occurrence: None)
  Receive Date: 20111122
  Receipt Date: 20120919
  Transmission Date: 20140127
  Serious: Yes (Other)
  Sender: FDA-Public Use
  Company Number: EU-2011-10224

PATIENT
  Sex: Male
  Weight: 43 kg

DRUGS (11)
  1. SAMSCA [Suspect]
     Indication: INAPPROPRIATE ANTIDIURETIC HORMONE SECRETION
     Route: 048
     Dates: start: 20100723, end: 20100726
  2. SAMSCA [Suspect]
     Indication: HYPONATRAEMIA
     Route: 048
     Dates: start: 20100723, end: 20100726
  3. BISOPROLOL FUMARATE [Concomitant]
  4. DIGITOXIN [Concomitant]
  5. KREON (PANCREATIN) [Concomitant]
  6. PHENPROCOUMON (PHENPROCOUMON) TABLET [Concomitant]
  7. PREDNISOLONE [Concomitant]
  8. TROSPIUM CHLORIDE [Concomitant]
  9. COLECALCIFEROL (COLECALCIFEROL) [Concomitant]
  10. ROCEPHIN (CEFTRIAXONE SODIUM) [Concomitant]
  11. SALINE (SALINE) [Concomitant]

REACTIONS (11)
  - Nephropathy [None]
  - Pneumonia [None]
  - Abdominal pain [None]
  - Fall [None]
  - Insomnia [None]
  - Somnolence [None]
  - Overdose [None]
  - Wrong technique in drug usage process [None]
  - Obstructive uropathy [None]
  - Pyrexia [None]
  - Incorrect drug administration rate [None]
